FAERS Safety Report 5117342-7 (Version None)
Quarter: 2006Q3

REPORT INFORMATION
  Report Type: 
  Country: None (occurrence: None)
  Receive Date: 20060926
  Receipt Date: 20060905
  Transmission Date: 20061208
  Serious: Yes (Hospitalization)
  Sender: FDA-Public Use
  Company Number: US200609001093

PATIENT
  Sex: Female

DRUGS (2)
  1. FORTEO [Suspect]
     Indication: OSTEOPOROSIS
     Dosage: UNK, UNK, UNK
     Dates: start: 20060605
  2. FORTEO PEN (250MCG/ML) (FORTEO PEN 250MCG/ML (3ML)0 PEN, DISPOSABLE [Concomitant]

REACTIONS (1)
  - CEREBROSPINAL FLUID RETENTION [None]
